FAERS Safety Report 17813470 (Version 1)
Quarter: 2020Q2

REPORT INFORMATION
  Report Type: Spontaneous
  Country: FR (occurrence: FR)
  Receive Date: 20200521
  Receipt Date: 20200521
  Transmission Date: 20200714
  Serious: Yes (Hospitalization, Other)
  Sender: FDA-Public Use
  Company Number: FR-009507513-2005FRA004595

PATIENT
  Age: 64 Year
  Sex: Male

DRUGS (1)
  1. JANUMET [Suspect]
     Active Substance: METFORMIN HYDROCHLORIDE\SITAGLIPTIN PHOSPHATE
     Dosage: 1 TABLET, IN THE MORNING
     Route: 048
     Dates: end: 2020

REACTIONS (7)
  - Pancreatitis acute [Recovering/Resolving]
  - Cholecystitis [Unknown]
  - Dysphagia [Unknown]
  - Helicobacter test positive [Unknown]
  - Incorrect dose administered [Unknown]
  - Mediastinal mass [Unknown]
  - Hepatic steatosis [Unknown]

NARRATIVE: CASE EVENT DATE: 2020
